FAERS Safety Report 23419082 (Version 1)
Quarter: 2024Q1

REPORT INFORMATION
  Report Type: Spontaneous
  Country: PT (occurrence: PT)
  Receive Date: 20240118
  Receipt Date: 20240118
  Transmission Date: 20240410
  Serious: Yes (Hospitalization, Other)
  Sender: FDA-Public Use
  Company Number: PT-ABBVIE-5551795

PATIENT
  Age: 3 Decade
  Sex: Female

DRUGS (4)
  1. PREDNISOLONE [Suspect]
     Active Substance: PREDNISOLONE
     Indication: Terminal ileitis
     Route: 065
  2. ADALIMUMAB [Suspect]
     Active Substance: ADALIMUMAB\ISOPROPYL ALCOHOL
     Indication: Crohn^s disease
     Route: 065
  3. CIPROFLOXACIN [Concomitant]
     Active Substance: CIPROFLOXACIN
     Indication: Evidence based treatment
  4. CIPROFLOXACIN [Concomitant]
     Active Substance: CIPROFLOXACIN
     Indication: Terminal ileitis

REACTIONS (8)
  - Pelvic abscess [Recovering/Resolving]
  - Abdominal lymphadenopathy [Recovering/Resolving]
  - Peritonitis [Recovering/Resolving]
  - Mycobacterial infection [Recovering/Resolving]
  - Disseminated tuberculosis [Recovered/Resolved]
  - Lymph node tuberculosis [Recovering/Resolving]
  - Pleural effusion [Recovering/Resolving]
  - Pneumonia [Recovering/Resolving]
